FAERS Safety Report 10137784 (Version 1)
Quarter: 2014Q2

REPORT INFORMATION
  Report Type: Spontaneous
  Country: US (occurrence: None)
  Receive Date: 20140428
  Receipt Date: 20140428
  Transmission Date: 20141212
  Serious: No
  Sender: FDA-Public Use
  Company Number: None

PATIENT
  Sex: 0

DRUGS (1)
  1. IBUPROFEN [Suspect]
     Indication: RHEUMATOID ARTHRITIS
     Dosage: 1 PILL TWICE DAILY BY MOUTH ,WITH FOOD
     Route: 048
     Dates: start: 20140219, end: 20140301

REACTIONS (2)
  - Product substitution issue [None]
  - Drug ineffective [None]
